FAERS Safety Report 17550377 (Version 1)
Quarter: 2020Q1

REPORT INFORMATION
  Report Type: Spontaneous
  Country: DE (occurrence: DE)
  Receive Date: 20200317
  Receipt Date: 20200317
  Transmission Date: 20200409
  Serious: Yes (Life-Threatening, Other)
  Sender: FDA-Public Use
  Company Number: DE-PFIZER INC-2020113796

PATIENT
  Sex: Female
  Weight: 59 kg

DRUGS (2)
  1. CYTOTEC [Suspect]
     Active Substance: MISOPROSTOL
     Indication: LABOUR INDUCTION
     Dosage: FIRST OF ALL ORAL, ON THE 3RD DAY RECTAL ADMINISTRATION
     Route: 048
     Dates: start: 20160321
  2. CYTOTEC [Suspect]
     Active Substance: MISOPROSTOL
     Indication: PROLONGED PREGNANCY
     Dosage: FIRST OF ALL ORAL, ON THE 3RD DAY RECTAL ADMINISTRATION
     Route: 054
     Dates: start: 20160323, end: 20160323

REACTIONS (5)
  - Uterine haemorrhage [Recovered/Resolved]
  - Off label use [Unknown]
  - Product use in unapproved indication [Unknown]
  - Shock haemorrhagic [Recovered/Resolved]
  - Retained placenta or membranes [Recovered/Resolved]

NARRATIVE: CASE EVENT DATE: 20160321
